FAERS Safety Report 8624992-X (Version None)
Quarter: 2012Q3

REPORT INFORMATION
  Report Type: 
  Country: None (occurrence: None)
  Receive Date: 20120827
  Receipt Date: 20120824
  Transmission Date: 20120928
  Serious: Yes (Life-Threatening, Hospitalization)
  Sender: FDA-Public Use
  Company Number: PHHY2012GB073447

PATIENT
  Age: 86 Year
  Sex: Male
  Weight: 89 kg

DRUGS (7)
  1. WARFARIN SODIUM [Suspect]
     Indication: AORTIC VALVE REPLACEMENT
     Route: 048
  2. BICALUTAMIDE [Suspect]
     Indication: PROSTATE CANCER
     Dosage: 50 MG, QD
     Route: 048
     Dates: start: 20120801
  3. BENDROFLUMETHIAZIDE [Concomitant]
  4. NICORANDIL [Concomitant]
  5. ATORVASTATIN [Concomitant]
  6. BISOPROLOL FUMARATE [Concomitant]
  7. TAMSULOSIN HCL [Concomitant]

REACTIONS (2)
  - HAEMATURIA [None]
  - INTERNATIONAL NORMALISED RATIO INCREASED [None]
